FAERS Safety Report 25760070 (Version 2)
Quarter: 2025Q3

REPORT INFORMATION
  Report Type: Report from Study
  Country: JP (occurrence: JP)
  Receive Date: 20250904
  Receipt Date: 20250913
  Transmission Date: 20251020
  Serious: Yes (Hospitalization)
  Sender: ABBVIE
  Company Number: JP-ABBVIE-6442981

PATIENT
  Age: 70 Year
  Sex: Male

DRUGS (2)
  1. VYALEV [Suspect]
     Active Substance: FOSCARBIDOPA\FOSLEVODOPA
     Indication: Parkinson^s disease
     Dosage: FIRST ADMIN DATE: 2025
     Route: 058
  2. VYALEV [Suspect]
     Active Substance: FOSCARBIDOPA\FOSLEVODOPA
     Dosage: LAST ADMIN DATE: 2025
     Route: 058
     Dates: start: 20250210

REACTIONS (7)
  - Prostate cancer [Unknown]
  - Sedation [Unknown]
  - Infusion site erythema [Recovered/Resolved]
  - Malaise [Unknown]
  - Insomnia [Unknown]
  - Infusion site erythema [Recovering/Resolving]
  - Infusion site nodule [Recovered/Resolved]

NARRATIVE: CASE EVENT DATE: 20250101
